FAERS Safety Report 12893713 (Version 1)
Quarter: 2016Q4

REPORT INFORMATION
  Report Type: Report from Study
  Country: US (occurrence: US)
  Receive Date: 20161028
  Receipt Date: 20161028
  Transmission Date: 20170207
  Serious: Yes (Death)
  Sender: FDA-Public Use
  Company Number: US-PFIZER INC-2016500911

PATIENT

DRUGS (3)
  1. DOCETAXEL. [Suspect]
     Active Substance: DOCETAXEL
     Indication: OESOPHAGEAL SQUAMOUS CELL CARCINOMA
     Dosage: 75 MG/M2, OVER 1 HOUR ON DAY 1 OF EACH CYCLE, EVERY 3 WEEKS FOR A TOTAL OF 6 CYCLES
     Route: 042
  2. DEXAMETHASONE. [Concomitant]
     Active Substance: DEXAMETHASONE
     Indication: PREMEDICATION
     Dosage: 8 MG EVERY 12 HOURS FOR 5 DOSES STARTING 24 HOURS PRIOR TO DOCETAXEL
     Route: 048
  3. CARBOPLATIN. [Suspect]
     Active Substance: CARBOPLATIN
     Indication: OESOPHAGEAL SQUAMOUS CELL CARCINOMA
     Dosage: AUC6, INFUSED OVER 15-30 MIN AFTER DOCETAXEL EVERY 3 WEEKS FOR A TOTAL OF 6 CYCLES
     Route: 042

REACTIONS (1)
  - Neutropenic infection [Fatal]
